FAERS Safety Report 11179940 (Version 1)
Quarter: 2015Q2

REPORT INFORMATION
  Report Type: Spontaneous
  Country: US (occurrence: US)
  Receive Date: 20150611
  Receipt Date: 20150611
  Transmission Date: 20150821
  Serious: No
  Sender: FDA-Public Use
  Company Number: US-TEVA-547074USA

PATIENT
  Age: 55 Year
  Sex: Female

DRUGS (2)
  1. CAPECITABINE. [Suspect]
     Active Substance: CAPECITABINE
     Dosage: TAKE 2 TABLETS BY MOUTH TWICE A DAY 7 DAYS ON AND 7 DAYS OFF
     Route: 048
  2. CAPECITABINE. [Suspect]
     Active Substance: CAPECITABINE
     Dosage: TAKE 2 TABLETS BY MOUTH TWICE A DAY 7 DAYS ON AND 7 DAYS OFF
     Route: 048

REACTIONS (4)
  - Tenderness [Unknown]
  - Palmar-plantar erythrodysaesthesia syndrome [Unknown]
  - Pain [Unknown]
  - Skin exfoliation [Unknown]
